FAERS Safety Report 15357147 (Version 1)
Quarter: 2018Q3

REPORT INFORMATION
  Report Type: Report from Study
  Country: US (occurrence: US)
  Receive Date: 20180906
  Receipt Date: 20180906
  Transmission Date: 20181010
  Serious: Yes (Other)
  Sender: FDA-Public Use
  Company Number: PHEH2018US036306

PATIENT
  Age: 61 Year
  Sex: Male

DRUGS (1)
  1. COSENTYX [Suspect]
     Active Substance: SECUKINUMAB
     Indication: PSORIATIC ARTHROPATHY
     Dosage: 300 MG, QMO
     Route: 058
     Dates: start: 20170225

REACTIONS (5)
  - Malignant melanoma [Unknown]
  - Myocardial infarction [Unknown]
  - Nausea [Unknown]
  - Malaise [Unknown]
  - Spinal pain [Unknown]

NARRATIVE: CASE EVENT DATE: 20180628
